FAERS Safety Report 5202272-2 (Version None)
Quarter: 2007Q1

REPORT INFORMATION
  Report Type: 
  Country: None (occurrence: None)
  Receive Date: 20070109
  Receipt Date: 20061227
  Transmission Date: 20070707
  Serious: Yes (Other)
  Sender: FDA-Public Use
  Company Number: AU-GLAXOSMITHKLINE-B0452744A

PATIENT
  Age: 3 Year
  Sex: Male

DRUGS (18)
  1. MELPHALAN [Suspect]
     Indication: T-CELL TYPE ACUTE LEUKAEMIA
     Dosage: 140MGM2 SINGLE DOSE
     Route: 065
  2. SULFAMETHOXAZOLE AND TRIMETHOPRIM [Suspect]
     Route: 065
  3. FUROSEMIDE [Suspect]
     Route: 065
  4. ACETAMINOPHEN [Suspect]
     Route: 065
  5. PREDNISOLONE [Suspect]
     Route: 065
  6. NEUPOGEN [Suspect]
     Route: 065
  7. ONDANSETRON [Suspect]
     Route: 065
  8. LISINOPRIL [Suspect]
     Route: 065
  9. LOPERAMIDE HCL [Suspect]
     Route: 065
  10. RANITIDINE [Suspect]
     Route: 065
  11. AMIKACIN [Concomitant]
     Route: 065
  12. FLUCONAZOLE [Concomitant]
     Route: 065
  13. GENTAMICIN [Concomitant]
     Route: 065
  14. MEROPENEM [Concomitant]
     Route: 065
  15. MYCOPHENOLATE MOFETIL [Concomitant]
     Route: 065
  16. TICARCILLIN + CLAVULANIC ACID [Concomitant]
     Route: 065
  17. VALACYCLOVIR HCL [Concomitant]
     Route: 065
  18. VANCOMYCIN [Concomitant]
     Route: 065

REACTIONS (5)
  - ABDOMINAL PAIN [None]
  - BLOOD AMYLASE INCREASED [None]
  - LIPASE INCREASED [None]
  - PANCREATITIS [None]
  - VOMITING [None]
